FAERS Safety Report 14820061 (Version 1)
Quarter: 2018Q2

REPORT INFORMATION
  Report Type: Spontaneous
  Country: US (occurrence: US)
  Receive Date: 20180403
  Receipt Date: 20180403
  Transmission Date: 20180711
  Serious: Yes (Other)
  Sender: FDA-Public Use
  Company Number: None

PATIENT
  Age: 76 Year
  Sex: Female
  Weight: 101.25 kg

DRUGS (18)
  1. BUMETANIDE. [Concomitant]
     Active Substance: BUMETANIDE
  2. HYDRALAZINE [Concomitant]
     Active Substance: HYDRALAZINE HYDROCHLORIDE
  3. NITROGLYCERIN. [Concomitant]
     Active Substance: NITROGLYCERIN
  4. IBRANCE [Suspect]
     Active Substance: PALBOCICLIB
     Indication: BREAST CANCER
     Route: 048
     Dates: start: 20180130
  5. ONDANSETRON [Concomitant]
     Active Substance: ONDANSETRON
  6. ALKA SELTZER SINUS AND COUGH [Concomitant]
  7. CLOPIDOGREL [Concomitant]
     Active Substance: CLOPIDOGREL BISULFATE
  8. CRANBERRY/PROBIOTICS [Concomitant]
  9. ATORVASTATIN [Concomitant]
     Active Substance: ATORVASTATIN
  10. ISOSORBIDE. [Concomitant]
     Active Substance: ISOSORBIDE
  11. METOPROLOL. [Concomitant]
     Active Substance: METOPROLOL
  12. OMEGA 3 [Concomitant]
     Active Substance: OMEGA-3 FATTY ACIDS
  13. AMOXICILLIN. [Concomitant]
     Active Substance: AMOXICILLIN
  14. LETROZOLE. [Concomitant]
     Active Substance: LETROZOLE
  15. TRADJENTA [Concomitant]
     Active Substance: LINAGLIPTIN
  16. ASPIRIN. [Concomitant]
     Active Substance: ASPIRIN
  17. LOPERAMIDE [Concomitant]
     Active Substance: LOPERAMIDE
  18. TYLENOL [Concomitant]
     Active Substance: ACETAMINOPHEN

REACTIONS (1)
  - Sinusitis [None]
